FAERS Safety Report 25447840 (Version 1)
Quarter: 2025Q2

REPORT INFORMATION
  Report Type: Spontaneous
  Country: FR (occurrence: FR)
  Receive Date: 20250617
  Receipt Date: 20250617
  Transmission Date: 20250717
  Serious: Yes (Hospitalization)
  Sender: ELI LILLY AND COMPANY
  Company Number: FR-ELI_LILLY_AND_COMPANY-FR202506010064

PATIENT
  Age: 86 Year
  Sex: Female
  Weight: 52.3 kg

DRUGS (9)
  1. GEMZAR [Suspect]
     Active Substance: GEMCITABINE HYDROCHLORIDE
     Indication: Adenocarcinoma pancreas
     Route: 042
     Dates: start: 20250509
  2. GEMZAR [Suspect]
     Active Substance: GEMCITABINE HYDROCHLORIDE
     Route: 042
     Dates: start: 20250516
  3. ABRAXANE [Suspect]
     Active Substance: PACLITAXEL
     Indication: Adenocarcinoma pancreas
     Route: 042
     Dates: start: 20250509
  4. ABRAXANE [Suspect]
     Active Substance: PACLITAXEL
     Route: 042
     Dates: start: 20250516
  5. LEVOTHYROXINE [Concomitant]
     Active Substance: LEVOTHYROXINE
     Indication: Product used for unknown indication
  6. CHOLECALCIFEROL [Concomitant]
     Active Substance: CHOLECALCIFEROL
     Indication: Product used for unknown indication
  7. BIOTIN\CALCIUM PANTOTHENATE\CYSTINE\MAGNESIUM PIDOLATE\METHIONINE\PYRI [Concomitant]
     Active Substance: BIOTIN\CALCIUM PANTOTHENATE\CYSTINE\MAGNESIUM PIDOLATE\METHIONINE\PYRIDOXINE
     Indication: Product used for unknown indication
  8. CALCIUM CARBONATE [Concomitant]
     Active Substance: CALCIUM CARBONATE
     Indication: Product used for unknown indication
  9. POLYETHYLENE GLYCOLS [Concomitant]
     Active Substance: POLYETHYLENE GLYCOLS
     Indication: Product used for unknown indication

REACTIONS (2)
  - Rash maculo-papular [Recovering/Resolving]
  - Acute generalised exanthematous pustulosis [Recovering/Resolving]

NARRATIVE: CASE EVENT DATE: 20250511
